FAERS Safety Report 7352515-4 (Version None)
Quarter: 2011Q1

REPORT INFORMATION
  Report Type: 
  Country: None (occurrence: None)
  Receive Date: 20110315
  Receipt Date: 20110308
  Transmission Date: 20110831
  Serious: Yes (Death, Other)
  Sender: FDA-Public Use
  Company Number: CZ-GENZYME-FLUD-1000876

PATIENT
  Age: 3 Month
  Sex: Male

DRUGS (2)
  1. FLUDARA [Suspect]
     Indication: STEM CELL TRANSPLANT
     Dosage: UNK
     Route: 065
  2. CYCLOSPORINE [Concomitant]
     Indication: PROPHYLAXIS AGAINST GRAFT VERSUS HOST DISEASE
     Route: 065

REACTIONS (12)
  - PULMONARY OEDEMA [None]
  - ROSEOLOVIRUS TEST POSITIVE [None]
  - LEFT VENTRICULAR DYSFUNCTION [None]
  - ACUTE GRAFT VERSUS HOST DISEASE IN SKIN [None]
  - RENAL FAILURE ACUTE [None]
  - GENERALISED OEDEMA [None]
  - PULMONARY VENO-OCCLUSIVE DISEASE [None]
  - PLEURAL EFFUSION [None]
  - BORDETELLA INFECTION [None]
  - HYPERKALAEMIA [None]
  - EVANS SYNDROME [None]
  - GASTROINTESTINAL OEDEMA [None]
